FAERS Safety Report 8251054-6 (Version None)
Quarter: 2012Q1

REPORT INFORMATION
  Report Type: 
  Country: None (occurrence: None)
  Receive Date: 20120320
  Receipt Date: 20120105
  Transmission Date: 20120608
  Serious: No
  Sender: FDA-Public Use
  Company Number: US-2012-10012

PATIENT
  Age: 59 Year
  Sex: Male
  Weight: 67.1 kg

DRUGS (1)
  1. SAMSCA [Suspect]
     Indication: INAPPROPRIATE ANTIDIURETIC HORMONE SECRETION
     Dosage: 15 MG MILLIGRAM(S), DAILY DOSE, ORAL
     Route: 048
     Dates: start: 20111101, end: 20111101

REACTIONS (4)
  - NO ADVERSE EVENT [None]
  - BLOOD SODIUM DECREASED [None]
  - BIOPSY LUNG [None]
  - TREATMENT NONCOMPLIANCE [None]
